FAERS Safety Report 13564810 (Version 2)
Quarter: 2017Q2

REPORT INFORMATION
  Report Type: Spontaneous
  Country: FI (occurrence: FI)
  Receive Date: 20170519
  Receipt Date: 20170524
  Transmission Date: 20170830
  Serious: Yes (Disabling)
  Sender: FDA-Public Use
  Company Number: FI-ASTRAZENECA-2017SE52600

PATIENT
  Age: 76 Year
  Sex: Female

DRUGS (14)
  1. COSOPT [Concomitant]
     Active Substance: DORZOLAMIDE HYDROCHLORIDE\TIMOLOL MALEATE
  2. HUMALOG [Concomitant]
     Active Substance: INSULIN LISPRO
  3. CALCICHEW D3 FORTE [Concomitant]
     Active Substance: CALCIUM\CHOLECALCIFEROL
  4. FURESIS [Concomitant]
     Active Substance: FUROSEMIDE
  5. IMOVANE [Concomitant]
     Active Substance: ZOPICLONE
  6. LIPITOR [Concomitant]
     Active Substance: ATORVASTATIN CALCIUM
  7. BRILIQUE [Suspect]
     Active Substance: TICAGRELOR
     Indication: PROPHYLAXIS
     Route: 048
     Dates: start: 20150410, end: 20160120
  8. SYSCOR [Concomitant]
  9. METOPROLOL TARTRATE. [Concomitant]
     Active Substance: METOPROLOL TARTRATE
  10. TOUJEO [Concomitant]
     Active Substance: INSULIN GLARGINE
  11. PANADOL FORTE [Concomitant]
     Active Substance: ACETAMINOPHEN\CAFFEINE
  12. TAFLUPROST [Concomitant]
     Active Substance: TAFLUPROST
  13. ATACAND [Concomitant]
     Active Substance: CANDESARTAN CILEXETIL
  14. ISMOX [Concomitant]
     Active Substance: ISOSORBIDE MONONITRATE

REACTIONS (2)
  - Hypothermia [Recovered/Resolved]
  - Nausea [Recovered/Resolved]

NARRATIVE: CASE EVENT DATE: 20150420
